FAERS Safety Report 18731314 (Version 4)
Quarter: 2023Q4

REPORT INFORMATION
  Report Type: Spontaneous
  Country: DK (occurrence: DK)
  Receive Date: 20210112
  Receipt Date: 20231102
  Transmission Date: 20240110
  Serious: Yes (Other)
  Sender: FDA-Public Use
  Company Number: DK-NOVARTISPH-NVSC2020DK272001

PATIENT
  Age: 25 Year
  Sex: Male

DRUGS (16)
  1. ADALIMUMAB [Suspect]
     Active Substance: ADALIMUMAB\ISOPROPYL ALCOHOL
     Indication: Hidradenitis
     Dosage: UNK
     Route: 065
  2. CIPROFLOXACIN HYDROCHLORIDE [Suspect]
     Active Substance: CIPROFLOXACIN HYDROCHLORIDE
     Indication: Hidradenitis
     Dosage: UNK
     Route: 065
  3. RIFAMPIN [Suspect]
     Active Substance: RIFAMPIN
     Indication: Hidradenitis
     Dosage: UNK
     Route: 065
  4. DOXYCYCLINE [Suspect]
     Active Substance: DOXYCYCLINE
     Indication: Hidradenitis
     Dosage: UNK
     Route: 065
  5. DICLOXACILLIN [Suspect]
     Active Substance: DICLOXACILLIN
     Indication: Hidradenitis
     Dosage: UNK
     Route: 065
  6. AZATHIOPRINE [Suspect]
     Active Substance: AZATHIOPRINE
     Indication: Hidradenitis
     Dosage: UNK
     Route: 065
  7. METRONIDAZOLE [Suspect]
     Active Substance: METRONIDAZOLE
     Indication: Hidradenitis
     Dosage: UNK
     Route: 065
  8. GUSELKUMAB [Suspect]
     Active Substance: GUSELKUMAB
     Indication: Hidradenitis
     Dosage: 100 MG (100 MILLIGRAM AT WEEK ZERO)
     Route: 058
     Dates: start: 201904
  9. GUSELKUMAB [Suspect]
     Active Substance: GUSELKUMAB
     Dosage: 100 MG, QW61D (6100 MG 1 WEEK)
     Route: 058
  10. GUSELKUMAB [Suspect]
     Active Substance: GUSELKUMAB
     Dosage: 100 MG (100 MG AT WEEK FOUR)
     Route: 058
  11. GUSELKUMAB [Suspect]
     Active Substance: GUSELKUMAB
     Dosage: 100 MG, (6 TIMES A WEEK)
     Route: 058
  12. GUSELKUMAB [Suspect]
     Active Substance: GUSELKUMAB
     Dosage: 100 MG (100 MG, 8 TIMES A WEEK (MAINTENANCE DOSE))
     Route: 058
  13. PENICILLIN G [Suspect]
     Active Substance: PENICILLIN G
     Indication: Hidradenitis
     Dosage: UNK
     Route: 065
  14. TETRACYCLINE [Suspect]
     Active Substance: TETRACYCLINE
     Indication: Hidradenitis
     Dosage: UNK
     Route: 065
  15. CLINDAMYCIN [Suspect]
     Active Substance: CLINDAMYCIN
     Indication: Hidradenitis
     Dosage: UNK
     Route: 065
  16. USTEKINUMAB [Suspect]
     Active Substance: USTEKINUMAB
     Indication: Hidradenitis
     Dosage: UNK
     Route: 065

REACTIONS (4)
  - Hidradenitis [Recovering/Resolving]
  - Pyrexia [Unknown]
  - Abdominal pain [Unknown]
  - Drug ineffective [Unknown]
